FAERS Safety Report 17445034 (Version 2)
Quarter: 2020Q1

REPORT INFORMATION
  Report Type: Spontaneous
  Country: US (occurrence: US)
  Receive Date: 20200221
  Receipt Date: 20200311
  Transmission Date: 20200409
  Serious: No
  Sender: FDA-Public Use
  Company Number: US-HORIZON-ACT-0092-2020

PATIENT
  Age: 24 Year
  Sex: Male

DRUGS (3)
  1. ACTIMMUNE [Suspect]
     Active Substance: INTERFERON GAMMA-1B
     Indication: CHRONIC GRANULOMATOUS DISEASE
     Dosage: 100MCG (5ML) 3 TIMES WEEKLY AS DIRECTED
     Route: 058
     Dates: start: 20071120
  2. BACTRIM [Concomitant]
     Active Substance: SULFAMETHOXAZOLE\TRIMETHOPRIM
     Indication: CHRONIC GRANULOMATOUS DISEASE
     Dosage: 1 TABLET BID
     Route: 048
  3. ITRACONAZOLE. [Concomitant]
     Active Substance: ITRACONAZOLE
     Indication: CHRONIC GRANULOMATOUS DISEASE
     Dosage: 2 CAPS (100MG CAPSULES) DAILY
     Route: 048

REACTIONS (1)
  - Nasopharyngitis [Recovered/Resolved]

NARRATIVE: CASE EVENT DATE: 202002
